FAERS Safety Report 8406193-3 (Version None)
Quarter: 2012Q2

REPORT INFORMATION
  Report Type: 
  Country: None (occurrence: None)
  Receive Date: 20120604
  Receipt Date: 20120526
  Transmission Date: 20120825
  Serious: Yes (Hospitalization)
  Sender: FDA-Public Use
  Company Number: US-BAYER-2011-059303

PATIENT
  Age: 34 Year
  Sex: Female
  Weight: 94.785 kg

DRUGS (7)
  1. FLEXERIL [Concomitant]
  2. LYRICA [Concomitant]
     Dosage: 150 MG, BID
  3. SEPTRA DS [Concomitant]
     Dosage: UNK
     Dates: start: 20080501
  4. YAZ [Suspect]
     Indication: PREMENSTRUAL SYNDROME
  5. AMITRIPTYLINE HCL [Concomitant]
     Dosage: 25 MG, UNK
     Dates: start: 20080213, end: 20080524
  6. YAZ [Suspect]
     Indication: CONTRACEPTION
     Dosage: UNK
     Route: 048
     Dates: start: 20071001, end: 20080706
  7. MOTRIN [Concomitant]

REACTIONS (10)
  - TRANSIENT ISCHAEMIC ATTACK [None]
  - PULMONARY EMBOLISM [None]
  - PAIN [None]
  - VIITH NERVE PARALYSIS [None]
  - ANXIETY [None]
  - DYSPNOEA [None]
  - MEMORY IMPAIRMENT [None]
  - EMOTIONAL DISTRESS [None]
  - DYSPHEMIA [None]
  - HEADACHE [None]
